APPROVED DRUG PRODUCT: TIMOLOL MALEATE
Active Ingredient: TIMOLOL MALEATE
Strength: EQ 0.25% BASE
Dosage Form/Route: SOLUTION, GEL FORMING/DROPS;OPHTHALMIC
Application: A216343 | Product #001
Applicant: AMNEAL EU LTD
Approved: May 23, 2024 | RLD: No | RS: No | Type: DISCN